FAERS Safety Report 6961821-4 (Version None)
Quarter: 2010Q3

REPORT INFORMATION
  Report Type: 
  Country: None (occurrence: None)
  Receive Date: 20100901
  Receipt Date: 20100208
  Transmission Date: 20110219
  Serious: Yes (Other)
  Sender: FDA-Public Use
  Company Number: PHHY2010IN07216

PATIENT
  Age: 32 Year
  Sex: Male

DRUGS (6)
  1. VALPROATE SODIUM [Interacting]
     Indication: CONVULSION
     Dosage: UNK
     Dates: start: 20060501
  2. MYCOPHENOLATE MOFETIL [Suspect]
     Dosage: 1440 MG/DAY
  3. PREDNISOLONE [Concomitant]
  4. MYCOPHENOLATE MOFETIL [Concomitant]
     Dosage: 2000 MG/DAY
  5. TACROLIMUS [Concomitant]
  6. CLOBAZAM [Concomitant]
     Dosage: 10 MG DAILY

REACTIONS (2)
  - DRUG INTERACTION [None]
  - TRANSPLANT REJECTION [None]
